FAERS Safety Report 7353112-7 (Version None)
Quarter: 2011Q1

REPORT INFORMATION
  Report Type: 
  Country: None (occurrence: None)
  Receive Date: 20110315
  Receipt Date: 20110301
  Transmission Date: 20110831
  Serious: Yes (Other)
  Sender: FDA-Public Use
  Company Number: IT-ELI_LILLY_AND_COMPANY-IT201103000444

PATIENT
  Sex: Male

DRUGS (5)
  1. DOBETIN [Concomitant]
  2. SOLDESAM [Concomitant]
  3. FOLIC ACID [Concomitant]
  4. ALIMTA [Suspect]
     Indication: ADENOSQUAMOUS CELL LUNG CANCER STAGE II
     Dosage: 975 MG, PER CYCLE
     Route: 042
     Dates: start: 20101124
  5. ALIMTA [Suspect]
     Dosage: 730 MG, PER CYCLE
     Route: 042
     Dates: start: 20110119

REACTIONS (2)
  - OFF LABEL USE [None]
  - HEPATOTOXICITY [None]
